FAERS Safety Report 6540303-8 (Version None)
Quarter: 2010Q1

REPORT INFORMATION
  Report Type: 
  Country: None (occurrence: None)
  Receive Date: 20100111
  Receipt Date: 20091222
  Transmission Date: 20100710
  Serious: Yes (Other)
  Sender: FDA-Public Use
  Company Number: 468709

PATIENT
  Age: 56 Year
  Sex: Female

DRUGS (4)
  1. IRINOTECAN HOSPIRA 20 MG/ML (IRINOTECAN) [Suspect]
     Indication: COLORECTAL CANCER METASTATIC
     Dosage: 320 MG, INTRAVENOUS
     Route: 042
     Dates: start: 20080701, end: 20090318
  2. FLUOROURACIL [Suspect]
     Indication: COLORECTAL CANCER METASTATIC
     Dosage: 2 G, INTRAVENOUS
     Route: 042
     Dates: start: 20071210, end: 20090318
  3. (CALCIUM FOLINATE) [Suspect]
     Indication: COLORECTAL CANCER METASTATIC
     Dosage: 320 MG INTRAVENOUS
     Route: 042
     Dates: start: 20071210, end: 20090318
  4. AVASTIN [Suspect]

REACTIONS (1)
  - HYPERLIPIDAEMIA [None]
